FAERS Safety Report 20372062 (Version 1)
Quarter: 2022Q1

REPORT INFORMATION
  Report Type: Spontaneous
  Country: US (occurrence: US)
  Receive Date: 20220124
  Receipt Date: 20220124
  Transmission Date: 20220423
  Serious: No
  Sender: FDA-Public Use
  Company Number: US-FERRINGPH-2021FE04729

PATIENT
  Age: 76 Year
  Sex: Female
  Weight: 68.027 kg

DRUGS (2)
  1. CLENPIQ [Suspect]
     Active Substance: ANHYDROUS CITRIC ACID\MAGNESIUM OXIDE\SODIUM PICOSULFATE
     Indication: Bowel preparation
     Dosage: 1 BOTTLE
     Route: 065
     Dates: start: 20210715
  2. CLENPIQ [Suspect]
     Active Substance: ANHYDROUS CITRIC ACID\MAGNESIUM OXIDE\SODIUM PICOSULFATE
     Indication: Endoscopy

REACTIONS (7)
  - Burning sensation [Unknown]
  - Pain [Unknown]
  - Vomiting [Unknown]
  - Diarrhoea [Unknown]
  - Incorrect dose administered [Unknown]
  - Drug ineffective [Unknown]
  - Product use in unapproved indication [Unknown]

NARRATIVE: CASE EVENT DATE: 20210701
